FAERS Safety Report 14567611 (Version 1)
Quarter: 2018Q1

REPORT INFORMATION
  Report Type: Report from Study
  Country: NL (occurrence: NL)
  Receive Date: 20180223
  Receipt Date: 20180223
  Transmission Date: 20180509
  Serious: Yes (Hospitalization, Other)
  Sender: FDA-Public Use
  Company Number: NL-AMGEN-NLDSL2018023856

PATIENT
  Age: 49 Year
  Sex: Female

DRUGS (1)
  1. REPATHA [Suspect]
     Active Substance: EVOLOCUMAB
     Indication: PRODUCT USED FOR UNKNOWN INDICATION
     Dosage: UNK
     Route: 065

REACTIONS (11)
  - Drug dose omission [Unknown]
  - Cystitis [Unknown]
  - Candida infection [Unknown]
  - Pain [Unknown]
  - Fluid retention [Unknown]
  - Pyrexia [Unknown]
  - Swelling face [Unknown]
  - Swelling [Unknown]
  - Weight increased [Unknown]
  - Pneumonia [Unknown]
  - Malabsorption [Unknown]
